FAERS Safety Report 4999278-5 (Version None)
Quarter: 2006Q2

REPORT INFORMATION
  Report Type: 
  Country: None (occurrence: None)
  Receive Date: 20060509
  Receipt Date: 20060427
  Transmission Date: 20061013
  Serious: Yes (Other)
  Sender: FDA-Public Use
  Company Number: US200604004550

PATIENT
  Age: 55 Year
  Sex: Female

DRUGS (3)
  1. PROZAC [Suspect]
     Indication: DEPRESSION
     Dosage: 10 MG, DAILY (1/D), ORAL  ; 20 MG, DAILY (1/D), ORAL
     Route: 048
     Dates: start: 20060201
  2. PROZAC [Suspect]
     Indication: DEPRESSION
     Dosage: 10 MG, DAILY (1/D), ORAL  ; 20 MG, DAILY (1/D), ORAL
     Route: 048
     Dates: start: 20060401
  3. ANTIHYPERTENSIVES [Concomitant]

REACTIONS (6)
  - BREAST CANCER FEMALE [None]
  - CRYING [None]
  - IRRITABILITY [None]
  - MOVEMENT DISORDER [None]
  - SENSATION OF HEAVINESS [None]
  - SOMNOLENCE [None]
